FAERS Safety Report 9709628 (Version 2)
Quarter: 2013Q4

REPORT INFORMATION
  Report Type: Spontaneous
  Country: US (occurrence: US)
  Receive Date: 20131126
  Receipt Date: 20131126
  Transmission Date: 20140711
  Serious: Yes (Hospitalization)
  Sender: FDA-Public Use
  Company Number: 2013SP003029

PATIENT
  Age: 65 Year
  Sex: Female

DRUGS (3)
  1. CEFTRIAXONE [Suspect]
     Indication: URINARY TRACT INFECTION
     Route: 042
  2. VANCOMYCIN [Concomitant]
     Indication: PYREXIA
  3. PIPERACILLIN/TAZOBACTAM [Concomitant]
     Indication: PYREXIA

REACTIONS (3)
  - Thrombocytopenia [Not Recovered/Not Resolved]
  - Petechiae [Not Recovered/Not Resolved]
  - Ecchymosis [Not Recovered/Not Resolved]
